FAERS Safety Report 5197232-4 (Version None)
Quarter: 2006Q4

REPORT INFORMATION
  Report Type: 
  Country: None (occurrence: None)
  Receive Date: 20061228
  Receipt Date: 20061213
  Transmission Date: 20070319
  Serious: Yes (Other)
  Sender: FDA-Public Use
  Company Number: GXKR2006BR08186

PATIENT
  Age: 62 Year
  Sex: Male

DRUGS (2)
  1. RIBAVIRIN [Suspect]
     Indication: HEPATITIS C
     Dosage: 1 G, QD
     Dates: start: 20050101
  2. PEGINTERFERON ALFA2A(PEGINTERFERON-ALFA-2A) [Suspect]
     Dosage: QW
     Dates: start: 20050101

REACTIONS (6)
  - ALANINE AMINOTRANSFERASE INCREASED [None]
  - AUTOANTIBODY POSITIVE [None]
  - AUTOIMMUNE DISORDER [None]
  - FATIGUE [None]
  - NEUTROPENIA [None]
  - THROMBOCYTOPENIA [None]
